FAERS Safety Report 7456932-3 (Version None)
Quarter: 2011Q1

REPORT INFORMATION
  Report Type: 
  Country: None (occurrence: None)
  Receive Date: 20110302
  Receipt Date: 20110106
  Transmission Date: 20110831
  Serious: Yes (Other)
  Sender: FDA-Public Use
  Company Number: 025041

PATIENT
  Sex: Female
  Weight: 771 kg

DRUGS (7)
  1. VITAMIN B12 [Concomitant]
  2. CIMZIA [Suspect]
     Indication: CROHN'S DISEASE
     Dosage: (400 MG 1X/MONTH SUBCUTANEOUS)
     Route: 058
     Dates: start: 20101002
  3. CALCIUM [Concomitant]
  4. FOSAMAX [Concomitant]
  5. QVAR 40 [Concomitant]
  6. METHOTREXATE [Concomitant]
  7. TYLENOL (CAPLET) [Concomitant]

REACTIONS (7)
  - ASTHENIA [None]
  - DRUG INEFFECTIVE [None]
  - INJECTION SITE PAIN [None]
  - FREQUENT BOWEL MOVEMENTS [None]
  - FATIGUE [None]
  - ARTHRALGIA [None]
  - INJECTION SITE MASS [None]
